FAERS Safety Report 5916959-7 (Version None)
Quarter: 2008Q4

REPORT INFORMATION
  Report Type: 
  Country: None (occurrence: None)
  Receive Date: 20081013
  Receipt Date: 20081008
  Transmission Date: 20090506
  Serious: Yes (Life-Threatening, Other)
  Sender: FDA-Public Use
  Company Number: JP-ASTRAZENECA-2008AP07661

PATIENT
  Age: 72 Year
  Sex: Male

DRUGS (4)
  1. OMEPRAZOLE [Suspect]
     Indication: GASTRIC ULCER
     Route: 048
     Dates: start: 20080908, end: 20080915
  2. PRAMIEL [Concomitant]
     Route: 048
     Dates: end: 20080915
  3. BERIZYM [Concomitant]
     Route: 048
     Dates: end: 20080915
  4. MUCOSTA [Concomitant]
     Route: 048
     Dates: start: 20080908, end: 20080915

REACTIONS (3)
  - HYPONATRAEMIA [None]
  - MULTI-ORGAN FAILURE [None]
  - SHOCK [None]
